FAERS Safety Report 7290399-3 (Version None)
Quarter: 2011Q1

REPORT INFORMATION
  Report Type: 
  Country: None (occurrence: None)
  Receive Date: 20110214
  Receipt Date: 20110202
  Transmission Date: 20110831
  Serious: Yes (Other)
  Sender: FDA-Public Use
  Company Number: US-SANOFI-AVENTIS-2010SA057196

PATIENT
  Age: 73 Year
  Sex: Female
  Weight: 67.2 kg

DRUGS (8)
  1. MULTAQ [Suspect]
     Route: 048
     Dates: start: 20100908, end: 20100909
  2. PLAVIX [Concomitant]
     Indication: STENT PLACEMENT
     Route: 048
     Dates: start: 20020923
  3. ASPIRIN [Concomitant]
     Indication: CORONARY ARTERY DISEASE
     Route: 065
     Dates: start: 20090921
  4. COUMADIN [Concomitant]
  5. HYDROCODONE [Concomitant]
     Indication: PAIN
  6. CARDIZEM [Concomitant]
  7. VYTORIN [Concomitant]
     Indication: CORONARY ARTERY DISEASE
     Dosage: 10/20 MG
     Route: 065
     Dates: start: 20100923
  8. METOPROLOL [Concomitant]
     Indication: CORONARY ARTERY DISEASE
     Route: 048
     Dates: start: 20090902

REACTIONS (1)
  - VENTRICULAR TACHYCARDIA [None]
